FAERS Safety Report 12193725 (Version 2)
Quarter: 2016Q2

REPORT INFORMATION
  Report Type: Spontaneous
  Country: US (occurrence: US)
  Receive Date: 20160321
  Receipt Date: 20160426
  Transmission Date: 20160815
  Serious: No
  Sender: FDA-Public Use
  Company Number: US-JNJFOC-20160225407

PATIENT
  Sex: Female
  Weight: 54.43 kg

DRUGS (1)
  1. CONCERTA [Suspect]
     Active Substance: METHYLPHENIDATE HYDROCHLORIDE
     Indication: PRODUCT USED FOR UNKNOWN INDICATION
     Route: 048

REACTIONS (7)
  - Unevaluable event [Recovered/Resolved]
  - Memory impairment [Not Recovered/Not Resolved]
  - Sinusitis [Unknown]
  - Feeling abnormal [Recovered/Resolved]
  - Therapy cessation [Unknown]
  - Migraine [Recovered/Resolved]
  - Product quality issue [Unknown]

NARRATIVE: CASE EVENT DATE: 2015
